FAERS Safety Report 19591840 (Version 3)
Quarter: 2022Q1

REPORT INFORMATION
  Report Type: Report from Study
  Country: US (occurrence: US)
  Receive Date: 20210721
  Receipt Date: 20220111
  Transmission Date: 20220423
  Serious: Yes (Hospitalization, Other)
  Sender: FDA-Public Use
  Company Number: US-SEATTLE GENETICS-2021SGN00124

PATIENT
  Sex: Female

DRUGS (5)
  1. TUCATINIB [Suspect]
     Active Substance: TUCATINIB
     Indication: Breast cancer female
     Dosage: 300 MG, BID
     Route: 048
  2. TUCATINIB [Suspect]
     Active Substance: TUCATINIB
     Dosage: 150 MG
     Route: 065
  3. TUCATINIB [Suspect]
     Active Substance: TUCATINIB
     Dosage: UNK
     Route: 065
  4. TUCATINIB [Suspect]
     Active Substance: TUCATINIB
     Dosage: UNK
     Route: 065
  5. TUCATINIB [Suspect]
     Active Substance: TUCATINIB
     Dosage: 150 MG
     Route: 065

REACTIONS (20)
  - Hallucination [Unknown]
  - Fall [Unknown]
  - Poor quality sleep [Unknown]
  - Blood iron decreased [Unknown]
  - Hospice care [Unknown]
  - White blood cell count decreased [Recovering/Resolving]
  - Musculoskeletal disorder [Unknown]
  - Iron deficiency [Unknown]
  - Oedema peripheral [Unknown]
  - Platelet count increased [Unknown]
  - Constipation [Unknown]
  - Rhinorrhoea [Unknown]
  - Pruritus [Unknown]
  - Off label use [Unknown]
  - Unevaluable event [Unknown]
  - Fatigue [Unknown]
  - Blood potassium decreased [Unknown]
  - Epistaxis [Unknown]
  - Arthralgia [Unknown]
  - Diarrhoea [Unknown]
